FAERS Safety Report 8807185 (Version 3)
Quarter: 2012Q4

REPORT INFORMATION
  Report Type: 
  Country: TR (occurrence: TR)
  Receive Date: 20120925
  Receipt Date: 20121101
  Transmission Date: 20130627
  Serious: Yes (Death)
  Sender: FDA-Public Use
  Company Number: TR-PFIZER INC-2012237380

PATIENT
  Age: 81 Year
  Sex: Female

DRUGS (10)
  1. NEURONTIN [Suspect]
     Indication: NEUROPATHIC PAIN
     Dosage: 300 mg, 2x/day
     Route: 048
     Dates: start: 201209
  2. ALDACTONE [Concomitant]
  3. ATORVASTATIN [Concomitant]
     Dosage: 10 mg, UNK
  4. THROMBOLIZ [Concomitant]
     Dosage: 75 mg, UNK
  5. NOOTROPIL [Concomitant]
     Dosage: 800 mg, UNK
  6. CONIEL [Concomitant]
     Dosage: 4 mg, UNK
  7. MONOKET [Concomitant]
     Dosage: 10 mg, (Isosorbite 25 mg, Mononitrate 5 mg)
  8. BETAHISTINE [Concomitant]
     Dosage: 24 mg, UNK
  9. ACTONEL [Concomitant]
     Dosage: 75 mg, UNK
  10. CO-DIOVAN [Concomitant]
     Dosage: 160 mg, (80 mg valsartan and 12.5 mg  HCTZ)

REACTIONS (1)
  - Myocardial infarction [Fatal]
